FAERS Safety Report 8880030 (Version 4)
Quarter: 2013Q1

REPORT INFORMATION
  Report Type: Spontaneous
  Country: US (occurrence: US)
  Receive Date: 20121101
  Receipt Date: 20130129
  Transmission Date: 20140127
  Serious: Yes (Hospitalization, Other)
  Sender: FDA-Public Use
  Company Number: US-BAYER-2012-113632

PATIENT
  Age: 41 Year
  Sex: Male

DRUGS (5)
  1. BETASERON [Suspect]
     Indication: RELAPSING-REMITTING MULTIPLE SCLEROSIS
     Dosage: 8 MIU, QOD
     Dates: start: 1995
  2. PROZAC [Concomitant]
  3. REMERON [Concomitant]
  4. ENALAPRIL [Concomitant]
  5. CIALIS [Concomitant]
     Dosage: 5 MG, QD

REACTIONS (5)
  - Meningitis viral [Recovered/Resolved]
  - Injection site swelling [None]
  - Headache [None]
  - Vomiting [None]
  - Acne [None]
